FAERS Safety Report 7207046-9 (Version None)
Quarter: 2011Q1

REPORT INFORMATION
  Report Type: 
  Country: None (occurrence: None)
  Receive Date: 20110103
  Receipt Date: 20101224
  Transmission Date: 20110831
  Serious: Yes (Disabling, Other)
  Sender: FDA-Public Use
  Company Number: B0689631A

PATIENT
  Sex: Female
  Weight: 135 kg

DRUGS (5)
  1. UNKNOWN [Concomitant]
  2. LAMICTAL [Suspect]
     Indication: BIPOLAR DISORDER
     Dosage: 25MG TWICE PER DAY
     Route: 065
  3. LEXAPRO [Concomitant]
     Route: 065
  4. SEROQUEL [Concomitant]
     Route: 065
  5. SOMAC [Concomitant]
     Route: 065

REACTIONS (2)
  - SWELLING FACE [None]
  - SWELLING [None]
